FAERS Safety Report 4357969-3 (Version None)
Quarter: 2004Q2

REPORT INFORMATION
  Report Type: 
  Country: None (occurrence: None)
  Receive Date: 20040513
  Receipt Date: 20040513
  Transmission Date: 20050107
  Serious: Yes (Hospitalization, Other)
  Sender: FDA-Public Use
  Company Number: None

PATIENT
  Age: 70 Month
  Sex: Male
  Weight: 72 kg

DRUGS (1)
  1. ALTEPLASE 1MG/ML GENENTECH [Suspect]
     Indication: ISCHAEMIC STROKE
     Dosage: 65 1 HR INTRAVENOUS
     Route: 042
     Dates: start: 20040429, end: 20040429

REACTIONS (1)
  - CAROTID ARTERY STENOSIS [None]
